FAERS Safety Report 6804940-5 (Version None)
Quarter: 2010Q2

REPORT INFORMATION
  Report Type: 
  Country: None (occurrence: None)
  Receive Date: 20100628
  Receipt Date: 20070721
  Transmission Date: 20101027
  Serious: No
  Sender: FDA-Public Use
  Company Number: US-PFIZER INC-2007050643

PATIENT
  Sex: Female
  Weight: 58.51 kg

DRUGS (5)
  1. PROCARDIA XL [Suspect]
     Indication: HYPERTENSION
     Route: 048
     Dates: start: 20060101
  2. LEVOTHYROXINE SODIUM [Concomitant]
     Indication: THYROID DISORDER
  3. ZOCOR [Concomitant]
     Indication: BLOOD CHOLESTEROL
  4. VALSARTAN [Concomitant]
     Indication: BLOOD PRESSURE
  5. LABETALOL HCL [Concomitant]

REACTIONS (1)
  - DENTAL DISCOMFORT [None]
